APPROVED DRUG PRODUCT: DEXTROAMP SACCHARATE, AMP ASPARTATE, DEXTROAMP SULFATE AND AMP SULFATE
Active Ingredient: AMPHETAMINE ASPARTATE; AMPHETAMINE SULFATE; DEXTROAMPHETAMINE SACCHARATE; DEXTROAMPHETAMINE SULFATE
Strength: 7.5MG;7.5MG;7.5MG;7.5MG
Dosage Form/Route: CAPSULE, EXTENDED RELEASE;ORAL
Application: A206159 | Product #006
Applicant: PH HEALTH LTD
Approved: May 31, 2019 | RLD: No | RS: No | Type: DISCN